FAERS Safety Report 14550689 (Version 1)
Quarter: 2018Q1

REPORT INFORMATION
  Report Type: Spontaneous
  Country: US (occurrence: US)
  Receive Date: 20180219
  Receipt Date: 20180219
  Transmission Date: 20180509
  Serious: Yes (Other)
  Sender: FDA-Public Use
  Company Number: US-JNJFOC-20180208060

PATIENT
  Age: 52 Year
  Sex: Female
  Weight: 91.17 kg

DRUGS (14)
  1. REMICADE [Suspect]
     Active Substance: INFLIXIMAB
     Indication: CROHN^S DISEASE
     Route: 042
     Dates: start: 20180201, end: 20180201
  2. NOVOLOG [Concomitant]
     Active Substance: INSULIN ASPART
     Route: 058
  3. FAMOTIDINE. [Concomitant]
     Active Substance: FAMOTIDINE
     Route: 048
  4. POTASSIUM [Concomitant]
     Active Substance: POTASSIUM
     Route: 048
  5. BENADRYL [Concomitant]
     Active Substance: DIPHENHYDRAMINE HYDROCHLORIDE
     Indication: PREMEDICATION
     Route: 042
     Dates: start: 20180201
  6. XOLAIR [Suspect]
     Active Substance: OMALIZUMAB
     Indication: PRURITUS
     Route: 050
  7. ACUPRIL [Concomitant]
     Active Substance: QUINAPRIL HYDROCHLORIDE
     Route: 048
  8. FENOFIBRATE. [Concomitant]
     Active Substance: FENOFIBRATE
     Route: 048
  9. XOLAIR [Suspect]
     Active Substance: OMALIZUMAB
     Indication: RASH
     Route: 050
  10. REMICADE [Suspect]
     Active Substance: INFLIXIMAB
     Indication: CROHN^S DISEASE
     Route: 042
  11. LASIX [Concomitant]
     Active Substance: FUROSEMIDE
     Route: 048
  12. HYDROXYZINE [Concomitant]
     Active Substance: HYDROXYZINE HYDROCHLORIDE
     Route: 065
  13. VITAMIN D [Concomitant]
     Active Substance: CHOLECALCIFEROL
     Route: 048
  14. FOLIC ACID. [Concomitant]
     Active Substance: FOLIC ACID
     Route: 048

REACTIONS (11)
  - Hypertension [Recovered/Resolved]
  - Dyspnoea [Recovered/Resolved]
  - Off label use [Unknown]
  - Infusion related reaction [Recovered/Resolved]
  - Heart rate increased [Recovered/Resolved]
  - Pruritus [Not Recovered/Not Resolved]
  - Rash [Not Recovered/Not Resolved]
  - Product use issue [Unknown]
  - Feeling hot [Recovered/Resolved]
  - Dizziness [Recovered/Resolved]
  - Presyncope [Recovered/Resolved]

NARRATIVE: CASE EVENT DATE: 2017
